FAERS Safety Report 12555650 (Version 1)
Quarter: 2016Q3

REPORT INFORMATION
  Report Type: Spontaneous
  Country: US (occurrence: US)
  Receive Date: 20160714
  Receipt Date: 20160714
  Transmission Date: 20161109
  Serious: No
  Sender: FDA-Public Use
  Company Number: US-PFIZER INC-2016308869

PATIENT
  Age: 65 Year
  Sex: Female

DRUGS (7)
  1. CODEINE PHOSPHATE [Suspect]
     Active Substance: CODEINE PHOSPHATE
     Dosage: UNK
     Dates: end: 20001231
  2. BENZYLPENICILLIN POTASSIUM [Suspect]
     Active Substance: PENICILLIN G POTASSIUM
     Dosage: UNK
     Dates: end: 20001231
  3. DURAGESIC [Suspect]
     Active Substance: FENTANYL
     Dosage: UNK
     Dates: end: 20001231
  4. CLEOCIN [Suspect]
     Active Substance: CLINDAMYCIN PHOSPHATE
     Dosage: UNK
     Dates: end: 20001231
  5. BACLOFEN. [Suspect]
     Active Substance: BACLOFEN
     Dosage: UNK
     Dates: end: 20001231
  6. TICLID [Suspect]
     Active Substance: TICLOPIDINE HYDROCHLORIDE
     Dosage: UNK
     Dates: end: 20001231
  7. TALWIN [Suspect]
     Active Substance: PENTAZOCINE LACTATE
     Dosage: UNK
     Dates: end: 20001231

REACTIONS (1)
  - Drug hypersensitivity [Unknown]
